FAERS Safety Report 9492097 (Version 2)
Quarter: 2013Q4

REPORT INFORMATION
  Report Type: Spontaneous
  Country: IT (occurrence: IT)
  Receive Date: 20130830
  Receipt Date: 20131023
  Transmission Date: 20140711
  Serious: Yes (Other)
  Sender: FDA-Public Use
  Company Number: IT-FRI-1000048159

PATIENT
  Age: 72 Year
  Sex: Female

DRUGS (6)
  1. FOSFOMYCIN [Suspect]
     Indication: URINARY TRACT INFECTION
     Dosage: 3 GRAM
     Route: 048
     Dates: start: 20130717, end: 20130717
  2. BRUFEN [Suspect]
     Indication: RENAL COLIC
     Dosage: 1200 MG
     Route: 048
     Dates: start: 20130717, end: 20130718
  3. TACHIDOL [Suspect]
     Indication: RENAL COLIC
     Dosage: 1 DF
     Route: 048
     Dates: start: 20130717, end: 20130718
  4. XALACOM [Concomitant]
     Dosage: 2.5 ML
  5. SYMBICORT [Concomitant]
     Dosage: 160/4.5 MCG
  6. TICLOPIDINE HYDROCHLORIDE [Concomitant]

REACTIONS (3)
  - Exophthalmos [Recovering/Resolving]
  - Erythema [Recovering/Resolving]
  - Pruritus generalised [Recovering/Resolving]
